FAERS Safety Report 16468494 (Version 1)
Quarter: 2019Q2

REPORT INFORMATION
  Report Type: Spontaneous
  Country: US (occurrence: US)
  Receive Date: 20190514
  Receipt Date: 20190514
  Transmission Date: 20190711
  Serious: No
  Sender: FDA-Public Use
  Company Number: None

PATIENT
  Age: 79 Year
  Sex: Male

DRUGS (1)
  1. TICE BCG [Suspect]
     Active Substance: BACILLUS CALMETTE-GUERIN SUBSTRAIN TICE LIVE ANTIGEN
     Dosage: ?          OTHER FREQUENCY:UNKNOWN;?
     Route: 043
     Dates: start: 201811

REACTIONS (1)
  - Product use issue [None]

NARRATIVE: CASE EVENT DATE: 20190514
